FAERS Safety Report 17029503 (Version 1)
Quarter: 2019Q4

REPORT INFORMATION
  Report Type: Spontaneous
  Country: AU (occurrence: AU)
  Receive Date: 20191114
  Receipt Date: 20191114
  Transmission Date: 20200122
  Serious: Yes (Other)
  Sender: FDA-Public Use
  Company Number: AU-B.I. PHARMACEUTICALS,INC./RIDGEFIELD-2019-MI-112759

PATIENT
  Sex: Male

DRUGS (2)
  1. GILOTRIF [Suspect]
     Active Substance: AFATINIB
     Indication: PRODUCT USED FOR UNKNOWN INDICATION
     Route: 065
     Dates: start: 201902
  2. GILOTRIF [Suspect]
     Active Substance: AFATINIB
     Route: 065
     Dates: start: 2019

REACTIONS (3)
  - Drug ineffective [Unknown]
  - Pain [Unknown]
  - Neoplasm [Unknown]

NARRATIVE: CASE EVENT DATE: 2019
